FAERS Safety Report 15839641 (Version 1)
Quarter: 2019Q1

REPORT INFORMATION
  Report Type: Spontaneous
  Country: HR (occurrence: HR)
  Receive Date: 20190117
  Receipt Date: 20190117
  Transmission Date: 20190417
  Serious: Yes (Other)
  Sender: FDA-Public Use
  Company Number: HR-TEVA-2019-HR-999016

PATIENT
  Sex: Female

DRUGS (5)
  1. CONCOR [Suspect]
     Active Substance: BISOPROLOL FUMARATE
     Route: 048
     Dates: start: 20181006, end: 20181006
  2. PRAXITEN 15 [Suspect]
     Active Substance: OXAZEPAM
     Route: 048
     Dates: start: 20181006, end: 20181006
  3. TINIDIL [Suspect]
     Active Substance: ISOSORBIDE DINITRATE
     Route: 048
     Dates: start: 20181006, end: 20181006
  4. TRITAZIDE [Suspect]
     Active Substance: HYDROCHLOROTHIAZIDE\RAMIPRIL
     Route: 048
     Dates: start: 20181006, end: 20181006
  5. HELEX [Suspect]
     Active Substance: ALPRAZOLAM
     Route: 048
     Dates: start: 20181006, end: 20181006

REACTIONS (5)
  - Somnolence [Unknown]
  - Bradycardia [Unknown]
  - Accidental exposure to product [Unknown]
  - Hypotension [Unknown]
  - Depressed level of consciousness [Unknown]

NARRATIVE: CASE EVENT DATE: 20181006
